FAERS Safety Report 25412798 (Version 1)
Quarter: 2025Q2

REPORT INFORMATION
  Report Type: Spontaneous
  Country: CN (occurrence: CN)
  Receive Date: 20250609
  Receipt Date: 20250609
  Transmission Date: 20250716
  Serious: Yes (Death, Hospitalization, Other)
  Sender: COHERUS
  Company Number: CN-SHANGHAI JUNSHI BIOSCIENCES CO., LTD.-CN2025014333

PATIENT

DRUGS (2)
  1. TORIPALIMAB [Suspect]
     Active Substance: TORIPALIMAB
     Indication: Transitional cell cancer of the renal pelvis and ureter
     Route: 041
     Dates: start: 20250117, end: 20250117
  2. DISITAMAB VEDOTIN [Suspect]
     Active Substance: DISITAMAB VEDOTIN
     Indication: Transitional cell cancer of the renal pelvis and ureter
     Route: 041
     Dates: start: 20250118, end: 20250118

REACTIONS (3)
  - Multiple organ dysfunction syndrome [Fatal]
  - Disease progression [Fatal]
  - Hepatic function abnormal [Not Recovered/Not Resolved]

NARRATIVE: CASE EVENT DATE: 20250119
